FAERS Safety Report 9962650 (Version 2)
Quarter: 2014Q1

REPORT INFORMATION
  Report Type: Report from Study
  Country: US (occurrence: US)
  Receive Date: 20140305
  Receipt Date: 20140305
  Transmission Date: 20141002
  Serious: No
  Sender: FDA-Public Use
  Company Number: US-ABBVIE-08P-163-0454565-00

PATIENT
  Age: 42 Year
  Sex: Female

DRUGS (5)
  1. HUMIRA 40 MG/ 0.8 ML PRE-FILLED SYRINGE [Suspect]
     Indication: CROHN^S DISEASE
     Dosage: ALTERNATES BETWEEN SYRINGE AND PEN
     Route: 058
     Dates: start: 200706
  2. HUMIRA 40 MG/0.8 ML PEN [Suspect]
     Indication: CROHN^S DISEASE
     Dosage: ALTERNATES BETWEEN SYRINGE AND PEN
     Route: 058
     Dates: start: 200706
  3. GABAPENTIN [Concomitant]
     Indication: HEADACHE
  4. NORVASC [Concomitant]
     Indication: BLOOD PRESSURE
  5. AMLODIPINE [Concomitant]
     Indication: HEADACHE

REACTIONS (8)
  - Wrong technique in drug usage process [Unknown]
  - Headache [Not Recovered/Not Resolved]
  - Rash [Not Recovered/Not Resolved]
  - Injection site reaction [Not Recovered/Not Resolved]
  - Injection site erythema [Not Recovered/Not Resolved]
  - Injection site induration [Not Recovered/Not Resolved]
  - Injection site warmth [Not Recovered/Not Resolved]
  - Incorrect dose administered [Unknown]
